FAERS Safety Report 23732020 (Version 2)
Quarter: 2024Q2

REPORT INFORMATION
  Report Type: Spontaneous
  Country: IT (occurrence: IT)
  Receive Date: 20240411
  Receipt Date: 20240419
  Transmission Date: 20240716
  Serious: Yes (Hospitalization, Other)
  Sender: FDA-Public Use
  Company Number: None

PATIENT
  Age: 45 Year
  Sex: Female

DRUGS (3)
  1. ARIPIPRAZOLE [Suspect]
     Active Substance: ARIPIPRAZOLE
     Indication: Suicide attempt
     Dosage: UNK (SEVEN 10 MG TABLETS)
     Route: 048
     Dates: start: 20240315, end: 20240315
  2. VENLAFAXINE HYDROCHLORIDE [Suspect]
     Active Substance: VENLAFAXINE HYDROCHLORIDE
     Indication: Suicide attempt
     Dosage: UNK (FOURTEEN 75 MG TABLETS)
     Route: 048
     Dates: start: 20240315, end: 20240315
  3. LYRICA [Suspect]
     Active Substance: PREGABALIN
     Indication: Suicide attempt
     Dosage: UNK
     Route: 048
     Dates: start: 20240315, end: 20240315

REACTIONS (4)
  - Sopor [Recovered/Resolved]
  - Rhabdomyolysis [Unknown]
  - Drug abuse [Unknown]
  - Product use in unapproved indication [Unknown]

NARRATIVE: CASE EVENT DATE: 20240315
